FAERS Safety Report 9172530 (Version 1)
Quarter: 2012Q4

REPORT INFORMATION
  Report Type: 
  Country: CA (occurrence: CA)
  Receive Date: 20120911
  Receipt Date: 20120911
  Transmission Date: 20130627
  Serious: Yes (Other)
  Sender: FDA-Public Use
  Company Number: CA-ROCHE-1114816

PATIENT
  Sex: Female

DRUGS (4)
  1. HERCEPTIN [Suspect]
     Indication: BREAST CANCER
     Route: 042
  2. DOXORUBICIN/DOXORUBICIN HYDROCHLORIDE [Suspect]
     Indication: BREAST CANCER
     Dosage: 60 mg/m2 in arm a and PLD 35 mg/m2 in arm B
     Route: 042
  3. CYCLOPHOSPHAMIDE [Suspect]
     Indication: BREAST CANCER
     Route: 042
  4. PACLITAXEL [Suspect]
     Indication: BREAST CANCER
     Route: 042

REACTIONS (11)
  - Neutropenia [Unknown]
  - Nausea [Unknown]
  - Diarrhoea [Unknown]
  - Neuropathy peripheral [Unknown]
  - Mucosal inflammation [Unknown]
  - Asthenia [Unknown]
  - Febrile neutropenia [Unknown]
  - Rash [Unknown]
  - Palmar-plantar erythrodysaesthesia syndrome [Unknown]
  - Myocardial infarction [Unknown]
  - Cardiac failure [Unknown]
